FAERS Safety Report 25271280 (Version 3)
Quarter: 2025Q3

REPORT INFORMATION
  Report Type: Report from Study
  Country: US (occurrence: US)
  Receive Date: 20250506
  Receipt Date: 20250925
  Transmission Date: 20251021
  Serious: Yes (Other)
  Sender: SUNOVION
  Company Number: US-SMPA-2025SPA005013

PATIENT
  Age: 84 Year
  Sex: Male

DRUGS (1)
  1. ORGOVYX [Suspect]
     Active Substance: RELUGOLIX
     Indication: Metastases to bone
     Dosage: 120 MG, QD
     Route: 048
     Dates: start: 20250207

REACTIONS (6)
  - Atrial fibrillation [Recovering/Resolving]
  - Cataract operation [Unknown]
  - Pruritus [Unknown]
  - Swelling [Unknown]
  - Incorrect dose administered [Recovered/Resolved]
  - Product use in unapproved indication [Unknown]

NARRATIVE: CASE EVENT DATE: 20250916
